FAERS Safety Report 7658904-2 (Version None)
Quarter: 2011Q3

REPORT INFORMATION
  Report Type: 
  Country: None (occurrence: None)
  Receive Date: 20110804
  Receipt Date: 20110804
  Transmission Date: 20111222
  Serious: Yes (Other)
  Sender: FDA-Public Use
  Company Number: None

PATIENT
  Sex: Female
  Weight: 77.1115 kg

DRUGS (1)
  1. TRILIPIX [Suspect]
     Indication: LIPIDS INCREASED
     Dosage: 1 CAPSULE DAILY ORALLY
     Route: 048
     Dates: start: 20110607, end: 20110609

REACTIONS (3)
  - NAUSEA [None]
  - PYREXIA [None]
  - HEADACHE [None]
